FAERS Safety Report 7459286-1 (Version None)
Quarter: 2011Q2

REPORT INFORMATION
  Report Type: 
  Country: None (occurrence: None)
  Receive Date: 20110505
  Receipt Date: 20110502
  Transmission Date: 20111010
  Serious: No
  Sender: FDA-Public Use
  Company Number: US-PFIZER INC-2011095675

PATIENT
  Sex: Female
  Weight: 78.912 kg

DRUGS (2)
  1. DEPO-PROVERA [Concomitant]
     Indication: CONTRACEPTION
     Dosage: UNK
  2. CHANTIX [Suspect]
     Indication: SMOKING CESSATION THERAPY
     Dosage: 0.5 MG, 1X/DAY
     Route: 048
     Dates: start: 20110502

REACTIONS (2)
  - VOMITING [None]
  - NAUSEA [None]
